FAERS Safety Report 15446861 (Version 3)
Quarter: 2018Q4

REPORT INFORMATION
  Report Type: Spontaneous
  Country: IT (occurrence: IT)
  Receive Date: 20180928
  Receipt Date: 20181011
  Transmission Date: 20190204
  Serious: Yes (Other)
  Sender: FDA-Public Use
  Company Number: IT-MYLANLABS-2018M1070746

PATIENT
  Age: 38 Year
  Sex: Female

DRUGS (16)
  1. FOLLITROPIN BETA [Suspect]
     Active Substance: FOLLITROPIN
     Indication: HORMONE THERAPY
     Dosage: 300 IU, UNK ( (SCHEDULED TO BE ADMINISTERED FOR 8 DAYS; RECEIVED DURING IN VITRO FERTILIZATION FRO)
     Route: 065
  2. FOLLITROPIN BETA [Suspect]
     Active Substance: FOLLITROPIN
     Indication: IN VITRO FERTILISATION
  3. CLOBAZAM. [Concomitant]
     Active Substance: CLOBAZAM
     Indication: EPILEPSY
     Dosage: 10 MG, BID
  4. CETRORELIX ACETATE [Suspect]
     Active Substance: CETRORELIX ACETATE
     Indication: HORMONE THERAPY
     Dosage: 0.25 MG, UNK (FOR 8 DAYS, RECEIVED DURING IN VITRO FERTILIZATION))
     Route: 065
  5. CETRORELIX ACETATE [Suspect]
     Active Substance: CETRORELIX ACETATE
     Indication: HYPOTHALAMO-PITUITARY DISORDER
  6. CETRORELIX ACETATE [Suspect]
     Active Substance: CETRORELIX ACETATE
     Indication: IN VITRO FERTILISATION
  7. LAMOTRIGINE. [Suspect]
     Active Substance: LAMOTRIGINE
     Indication: PARTIAL SEIZURES
     Dosage: 450 MG, QD
  8. LEVETIRACETAM. [Suspect]
     Active Substance: LEVETIRACETAM
     Dosage: UNK, TID (1000 THRICE DAILY)
     Route: 048
  9. GESTODENE [Suspect]
     Active Substance: GESTODENE
     Indication: HORMONE THERAPY
     Dosage: 0.03 MG, UNK (SCHEDULED TO BE ADMINISTERED FOR 28 DAYS; RECEIVED DURING IN VITRO FERTILIZATION)
     Route: 065
  10. LAMOTRIGINE. [Interacting]
     Active Substance: LAMOTRIGINE
     Dosage: 350 MG, QD
  11. GESTODENE [Suspect]
     Active Substance: GESTODENE
     Indication: IN VITRO FERTILISATION
  12. ESTRADIOL. [Interacting]
     Active Substance: ESTRADIOL
     Indication: ASSISTED REPRODUCTIVE TECHNOLOGY
     Dosage: UNK
  13. ESTRADIOL. [Interacting]
     Active Substance: ESTRADIOL
     Indication: HORMONE THERAPY
     Dosage: 4 MG, FOR 10 DAYS
  14. ETHINYLESTRADIOL [Suspect]
     Active Substance: ETHINYL ESTRADIOL
     Indication: HORMONE THERAPY
     Dosage: 0.075 MG, UNK ( (SCHEDULED TO BE ADMINISTERED FOR 28 DAYS; RECEIVED DURING IN VITRO FERTILIZATION)
     Route: 065
  15. ETHINYLESTRADIOL [Suspect]
     Active Substance: ETHINYL ESTRADIOL
     Indication: IN VITRO FERTILISATION
  16. LEVETIRACETAM. [Suspect]
     Active Substance: LEVETIRACETAM
     Indication: GENERALISED TONIC-CLONIC SEIZURE
     Dosage: UNK
     Route: 048

REACTIONS (5)
  - Condition aggravated [Recovered/Resolved]
  - Drug level decreased [Unknown]
  - Drug ineffective [Recovered/Resolved]
  - Generalised tonic-clonic seizure [Recovered/Resolved]
  - Drug interaction [Unknown]
